FAERS Safety Report 9517419 (Version 3)
Quarter: 2013Q4

REPORT INFORMATION
  Report Type: Spontaneous
  Country: BR (occurrence: BR)
  Receive Date: 20130911
  Receipt Date: 20131108
  Transmission Date: 20140711
  Serious: Yes (Other)
  Sender: FDA-Public Use
  Company Number: BR-PFIZER INC-2013260931

PATIENT
  Sex: Male

DRUGS (1)
  1. LIPITOR [Suspect]
     Dosage: 1 TABLET OF STRENGTH 20 MG, DAILY

REACTIONS (5)
  - Wound haemorrhage [Unknown]
  - Product blister packaging issue [Unknown]
  - Product package associated injury [Unknown]
  - Circumstance or information capable of leading to medication error [Unknown]
  - Blood cholesterol increased [Unknown]
